FAERS Safety Report 18483288 (Version 1)
Quarter: 2020Q4

REPORT INFORMATION
  Report Type: Spontaneous
  Country: US (occurrence: US)
  Receive Date: 20201109
  Receipt Date: 20201109
  Transmission Date: 20210114
  Serious: No
  Sender: FDA-Public Use
  Company Number: US-ROCHE-2552309

PATIENT
  Age: 16 Year
  Sex: Male

DRUGS (2)
  1. PULMOZYME [Suspect]
     Active Substance: DORNASE ALFA
     Indication: CYSTIC FIBROSIS
     Dosage: 1 MG/ML AMP*REFRIG
     Route: 055
     Dates: start: 2005
  2. SYMDEKO [Suspect]
     Active Substance: IVACAFTOR\TEZACAFTOR
     Indication: CYSTIC FIBROSIS
     Route: 065

REACTIONS (2)
  - Weight gain poor [Unknown]
  - Muscle spasms [Unknown]

NARRATIVE: CASE EVENT DATE: 20200213
